FAERS Safety Report 7509097-3 (Version None)
Quarter: 2011Q2

REPORT INFORMATION
  Report Type: 
  Country: None (occurrence: None)
  Receive Date: 20110527
  Receipt Date: 20110516
  Transmission Date: 20111010
  Serious: Yes (Hospitalization, Other)
  Sender: FDA-Public Use
  Company Number: IN-PFIZER INC-2011105808

PATIENT
  Age: 42 Year
  Sex: Male

DRUGS (11)
  1. CITALOPRAM HYDROBROMIDE [Interacting]
     Indication: DEPRESSION
  2. ATORVASTATIN CALCIUM [Suspect]
     Indication: DYSLIPIDAEMIA
  3. PROPRANOLOL [Interacting]
     Indication: SCHIZOPHRENIA
  4. QUETIAPINE [Interacting]
     Indication: DEPRESSION
  5. PROPRANOLOL [Interacting]
     Indication: DEPRESSION
  6. FENOFIBRATE [Interacting]
     Indication: DYSLIPIDAEMIA
  7. QUETIAPINE [Interacting]
     Indication: SCHIZOPHRENIA
  8. WARFARIN SODIUM [Interacting]
     Indication: DEEP VEIN THROMBOSIS
  9. DICLOFENAC SODIUM [Interacting]
     Indication: PAIN IN EXTREMITY
  10. CITALOPRAM HYDROBROMIDE [Interacting]
     Indication: SCHIZOPHRENIA
  11. ASPIRIN [Interacting]
     Indication: DEEP VEIN THROMBOSIS

REACTIONS (12)
  - MUCOSAL HAEMORRHAGE [None]
  - PUNCTURE SITE DISCHARGE [None]
  - EXTRADURAL HAEMATOMA [None]
  - ARTHRALGIA [None]
  - SPINAL EPIDURAL HAEMORRHAGE [None]
  - DRUG INTERACTION [None]
  - VENOUS RECANALISATION [None]
  - HYPOVOLAEMIC SHOCK [None]
  - DEEP VEIN THROMBOSIS [None]
  - PURPURA [None]
  - MELAENA [None]
  - ECCHYMOSIS [None]
